FAERS Safety Report 9680603 (Version 1)
Quarter: 2013Q4

REPORT INFORMATION
  Report Type: Spontaneous
  Country: US (occurrence: US)
  Receive Date: 20131111
  Receipt Date: 20131111
  Transmission Date: 20140711
  Serious: No
  Sender: FDA-Public Use
  Company Number: US-PFIZER INC-2013317798

PATIENT
  Age: 69 Year
  Sex: Male
  Weight: 93.88 kg

DRUGS (3)
  1. CELEBREX [Suspect]
     Indication: OSTEOPOROSIS
     Dosage: 200 MG, 2X/DAY
     Dates: start: 20130708, end: 20131027
  2. CELEBREX [Suspect]
     Indication: ARTHRITIS
  3. PREVACID [Concomitant]
     Indication: GASTROOESOPHAGEAL REFLUX DISEASE
     Dosage: UNK

REACTIONS (2)
  - Abdominal pain upper [Unknown]
  - Gastrointestinal disorder [Unknown]
